FAERS Safety Report 21607257 (Version 2)
Quarter: 2022Q4

REPORT INFORMATION
  Report Type: Spontaneous
  Country: JP (occurrence: JP)
  Receive Date: 20221117
  Receipt Date: 20221201
  Transmission Date: 20230113
  Serious: Yes (Hospitalization, Other)
  Sender: FDA-Public Use
  Company Number: JP-NBI-J202219145BIPI

PATIENT
  Age: 57 Year
  Sex: Male
  Weight: 85 kg

DRUGS (7)
  1. JARDIANCE [Suspect]
     Active Substance: EMPAGLIFLOZIN
     Indication: Type 2 diabetes mellitus
     Route: 048
     Dates: end: 20221110
  2. NESINA [Concomitant]
     Active Substance: ALOGLIPTIN BENZOATE
     Indication: Type 2 diabetes mellitus
     Route: 048
     Dates: end: 20221110
  3. EPERISONE HYDROCHLORIDE [Concomitant]
     Active Substance: EPERISONE HYDROCHLORIDE
     Indication: Back pain
     Route: 048
  4. CETOTIAMINE HYDROCHLORIDE [Concomitant]
     Active Substance: CETOTIAMINE HYDROCHLORIDE
     Indication: Neuralgia
     Route: 048
     Dates: end: 20221110
  5. METGLUCO [Concomitant]
     Active Substance: METFORMIN HYDROCHLORIDE
     Indication: Type 2 diabetes mellitus
     Dosage: TABLET (INACTIVE)
     Route: 048
  6. AMLODIPINE [Concomitant]
     Active Substance: AMLODIPINE BESYLATE
     Indication: Hypertension
     Route: 065
  7. OMEPRAZOLE [Concomitant]
     Active Substance: OMEPRAZOLE
     Indication: Gastrooesophageal reflux disease
     Route: 065

REACTIONS (1)
  - Fournier^s gangrene [Recovering/Resolving]

NARRATIVE: CASE EVENT DATE: 20221101
